FAERS Safety Report 18761716 (Version 3)
Quarter: 2021Q1

REPORT INFORMATION
  Report Type: Spontaneous
  Country: FR (occurrence: FR)
  Receive Date: 20210120
  Receipt Date: 20210211
  Transmission Date: 20210419
  Serious: Yes (Hospitalization)
  Sender: FDA-Public Use
  Company Number: FR-CELGENEUS-FRA-20210102756

PATIENT
  Age: 78 Year
  Sex: Female
  Weight: 64 kg

DRUGS (12)
  1. KARDEGIC [Concomitant]
     Active Substance: ASPIRIN DL-LYSINE
     Indication: THROMBOSIS PROPHYLAXIS
     Dosage: 300 MILLIGRAM
     Route: 048
     Dates: start: 20160315
  2. PENTACARINAT [Concomitant]
     Active Substance: PENTAMIDINE ISETHIONATE
     Indication: INFECTION PROPHYLAXIS
     Route: 055
     Dates: start: 20170522
  3. VALACICLOVIR [Concomitant]
     Active Substance: VALACYCLOVIR HYDROCHLORIDE
     Indication: INFECTION PROPHYLAXIS
     Dosage: 1000 MILLIGRAM
     Route: 048
     Dates: start: 20160226
  4. RULID [Concomitant]
     Active Substance: ROXITHROMYCIN
     Indication: INFECTION PROPHYLAXIS
     Dosage: 150 MILLIGRAM
     Route: 048
     Dates: start: 20160321
  5. FLIXOTIDE [Concomitant]
     Active Substance: FLUTICASONE PROPIONATE
     Indication: INCREASED BRONCHIAL SECRETION
     Dosage: 500 MICROGRAM
     Route: 055
  6. LENALIDOMIDE [Suspect]
     Active Substance: LENALIDOMIDE
     Indication: PLASMA CELL MYELOMA
     Dosage: 5 MILLIGRAM
     Route: 048
     Dates: start: 20160314, end: 20201220
  7. SPIRIVA [Concomitant]
     Active Substance: TIOTROPIUM BROMIDE MONOHYDRATE
     Indication: INCREASED BRONCHIAL SECRETION
     Route: 055
  8. DARATUMUMAB [Concomitant]
     Active Substance: DARATUMUMAB
     Indication: PLASMA CELL MYELOMA
     Dosage: 1800 MILLIGRAM
     Route: 041
     Dates: start: 20160314, end: 20201130
  9. DEXAMETHASONE. [Suspect]
     Active Substance: DEXAMETHASONE
     Indication: PLASMA CELL MYELOMA
     Dosage: 40 MILLIGRAM
     Route: 041
     Dates: start: 20160314, end: 20160329
  10. PROCORALAN [Concomitant]
     Active Substance: IVABRADINE
     Indication: PALPITATIONS
     Dosage: 15 MILLIGRAM
     Route: 048
  11. IRBESARTAN. [Concomitant]
     Active Substance: IRBESARTAN
     Indication: HYPERTENSION
     Dosage: 150 MILLIGRAM
     Route: 048
  12. VORTIOXETINE. [Concomitant]
     Active Substance: VORTIOXETINE
     Indication: DEPRESSION
     Dosage: 5 MILLIGRAM
     Route: 048
     Dates: start: 20200625

REACTIONS (1)
  - Obstruction gastric [Recovered/Resolved]

NARRATIVE: CASE EVENT DATE: 20210101
